FAERS Safety Report 17054211 (Version 1)
Quarter: 2019Q4

REPORT INFORMATION
  Report Type: Report from Study
  Country: IN (occurrence: IN)
  Receive Date: 20191120
  Receipt Date: 20191120
  Transmission Date: 20200122
  Serious: Yes (Other)
  Sender: FDA-Public Use
  Company Number: IN-ASTRAZENECA-2019SF61694

PATIENT
  Age: 60 Year
  Sex: Female

DRUGS (8)
  1. LEVOTHYROXINE. [Concomitant]
     Active Substance: LEVOTHYROXINE
     Route: 065
  2. PIPAMPERONE [Concomitant]
     Active Substance: PIPAMPERONE
     Route: 065
  3. QUETIAPINE. [Suspect]
     Active Substance: QUETIAPINE
     Route: 048
  4. VALSARTAN. [Concomitant]
     Active Substance: VALSARTAN
     Route: 065
  5. GLIMEPIRIDE. [Concomitant]
     Active Substance: GLIMEPIRIDE
     Route: 065
  6. LITHIUM. [Suspect]
     Active Substance: LITHIUM
     Route: 065
  7. HYDROCHLOROTHIAZIDE. [Concomitant]
     Active Substance: HYDROCHLOROTHIAZIDE
     Route: 065
  8. CHLORPROTHIXENE [Concomitant]
     Active Substance: CHLORPROTHIXENE
     Route: 065

REACTIONS (1)
  - Toxicity to various agents [Unknown]
